FAERS Safety Report 8520831 (Version 17)
Quarter: 2013Q4

REPORT INFORMATION
  Report Type: Spontaneous
  Country: US (occurrence: US)
  Receive Date: 20120419
  Receipt Date: 20131203
  Transmission Date: 20140711
  Serious: Yes (Hospitalization, Other)
  Sender: FDA-Public Use
  Company Number: US-ASTRAZENECA-2011SE32236

PATIENT
  Age: 49 Year
  Sex: Female

DRUGS (78)
  1. NEXIUM [Suspect]
     Indication: GASTROOESOPHAGEAL REFLUX DISEASE
     Route: 048
     Dates: start: 2001, end: 2011
  2. NEXIUM [Suspect]
     Indication: ABDOMINAL DISCOMFORT
     Route: 048
     Dates: start: 2001, end: 2011
  3. NEXIUM [Suspect]
     Indication: GASTROOESOPHAGEAL REFLUX DISEASE
     Dosage: EVERY DAY
     Route: 048
     Dates: start: 2003
  4. NEXIUM [Suspect]
     Indication: ABDOMINAL DISCOMFORT
     Dosage: EVERY DAY
     Route: 048
     Dates: start: 2003
  5. NEXIUM [Suspect]
     Indication: GASTROOESOPHAGEAL REFLUX DISEASE
     Route: 048
     Dates: start: 20060629, end: 20070327
  6. NEXIUM [Suspect]
     Indication: ABDOMINAL DISCOMFORT
     Route: 048
     Dates: start: 20060629, end: 20070327
  7. NEXIUM [Suspect]
     Indication: GASTROOESOPHAGEAL REFLUX DISEASE
     Dosage: ONE CAPSULE EVERY DAY IN THE MORNING
     Route: 048
     Dates: start: 20060721
  8. NEXIUM [Suspect]
     Indication: ABDOMINAL DISCOMFORT
     Dosage: ONE CAPSULE EVERY DAY IN THE MORNING
     Route: 048
     Dates: start: 20060721
  9. NEXIUM [Suspect]
     Indication: GASTROOESOPHAGEAL REFLUX DISEASE
     Route: 048
     Dates: start: 20091019
  10. NEXIUM [Suspect]
     Indication: ABDOMINAL DISCOMFORT
     Route: 048
     Dates: start: 20091019
  11. NEXIUM [Suspect]
     Indication: GASTROOESOPHAGEAL REFLUX DISEASE
     Route: 048
     Dates: start: 20100211
  12. NEXIUM [Suspect]
     Indication: ABDOMINAL DISCOMFORT
     Route: 048
     Dates: start: 20100211
  13. NEXIUM [Suspect]
     Indication: GASTROOESOPHAGEAL REFLUX DISEASE
     Route: 048
     Dates: start: 20100226
  14. NEXIUM [Suspect]
     Indication: ABDOMINAL DISCOMFORT
     Route: 048
     Dates: start: 20100226
  15. NEXIUM [Suspect]
     Indication: GASTROOESOPHAGEAL REFLUX DISEASE
     Route: 048
     Dates: start: 20120521
  16. NEXIUM [Suspect]
     Indication: ABDOMINAL DISCOMFORT
     Route: 048
     Dates: start: 20120521
  17. OMEPRAZOLE [Suspect]
     Indication: GASTRIC DISORDER
     Route: 048
     Dates: start: 2001, end: 2012
  18. OMEPRAZOLE [Suspect]
     Indication: GASTRIC DISORDER
     Route: 048
     Dates: start: 20130410
  19. PRILOSEC OTC/ OTC OMEORAZOLE [Suspect]
     Route: 048
  20. CRESTOR [Concomitant]
     Indication: BLOOD CHOLESTEROL INCREASED
  21. CRESTOR [Concomitant]
     Indication: BLOOD CHOLESTEROL INCREASED
     Dates: start: 20120521
  22. HYDROCHLOROTHIAZIDE [Concomitant]
     Indication: HYPERTENSION
     Route: 048
     Dates: start: 20060503
  23. HYDROCHLOROTHIAZIDE [Concomitant]
     Indication: HYPERTENSION
  24. HYDROCHLOROTHIAZIDE [Concomitant]
     Indication: HYPERTENSION
     Route: 048
     Dates: start: 20100211
  25. ZOLPIDEM [Concomitant]
     Indication: SLEEP DISORDER
     Dates: start: 20100309
  26. AMITRIPTYLINE [Concomitant]
     Indication: DEPRESSION
  27. AMITRIPTYLINE [Concomitant]
     Indication: DEPRESSION
     Dates: start: 20090914
  28. EXFORGE [Concomitant]
     Indication: BLOOD PRESSURE ABNORMAL
     Dosage: 5/320 ONE TAB PER ORAL DAILY
     Route: 048
     Dates: start: 20100211
  29. EXFORGE [Concomitant]
     Indication: BLOOD PRESSURE ABNORMAL
     Route: 048
     Dates: start: 20120521
  30. HYDROCO/ACETAMIN/NORCO/VICODIN ES [Concomitant]
     Indication: BACK PAIN
     Dosage: 5/5000 MG EVERY 8 HOURS AS NEEDED
     Route: 048
     Dates: start: 20061115, end: 20070711
  31. HYDROCO/ACETAMIN/NORCO/VICODIN ES [Concomitant]
     Indication: BACK PAIN
     Dosage: 10MG/325MG TO BE TAKEN EVERY 12 HOURS
     Route: 048
     Dates: start: 20091006
  32. HYDROCO/ACETAMIN/NORCO/VICODIN ES [Concomitant]
     Indication: BACK PAIN
     Dosage: ONE OR TWO TAB PER ORAL DAILY
     Route: 048
     Dates: start: 20100211
  33. HYDROCO/ACETAMIN/NORCO/VICODIN ES [Concomitant]
     Indication: BACK PAIN
     Dosage: 10-325 MG
     Route: 048
     Dates: start: 20100325
  34. METOPROLOL TARTRATE [Concomitant]
     Route: 048
     Dates: start: 20060721
  35. METOPROLOL TARTRATE [Concomitant]
     Route: 048
     Dates: start: 20100325
  36. METOPROLOL TARTRATE [Concomitant]
     Route: 048
     Dates: start: 20090914
  37. METOPROLOL TARTRATE [Concomitant]
     Route: 048
     Dates: start: 20100211
  38. NEURONTIN [Concomitant]
     Route: 048
     Dates: start: 20061113, end: 20070711
  39. NEURONTIN [Concomitant]
     Route: 048
     Dates: start: 20091002
  40. NEURONTIN [Concomitant]
     Route: 048
     Dates: start: 20100211
  41. METHOCARBAMOL/ROBAXIN [Concomitant]
     Indication: MUSCLE SPASMS
     Route: 048
     Dates: start: 20061113, end: 20070402
  42. METHOCARBAMOL/ROBAXIN [Concomitant]
     Indication: MUSCLE SPASMS
     Route: 048
     Dates: start: 20091229
  43. METHOCARBAMOL/ROBAXIN [Concomitant]
     Indication: MUSCLE SPASMS
     Route: 048
     Dates: start: 20100211
  44. PHENERGAN [Concomitant]
     Route: 048
     Dates: start: 20100211
  45. SIMVASTATIN [Concomitant]
     Route: 048
     Dates: start: 20060721
  46. SIMVASTATIN [Concomitant]
     Dosage: 10/20MG ONE TABLET PO DAILY
     Route: 048
     Dates: start: 20100211
  47. NITRIPTYLINE [Concomitant]
     Dates: start: 20100211
  48. CYCLOBENZAPRINE [Concomitant]
     Route: 048
     Dates: end: 20060503
  49. CYCLOBENZAPRINE [Concomitant]
     Dates: start: 20090914
  50. CYCLOBENZAPRINE [Concomitant]
     Route: 048
     Dates: start: 20090930
  51. NITROGLYCERIN [Concomitant]
     Dosage: 0.2MG PER HOUR PATCHES
     Dates: start: 20091001
  52. PREVACID [Concomitant]
     Route: 048
     Dates: start: 20091017
  53. PREVACID [Concomitant]
     Dates: start: 20090914
  54. DIOVAN [Concomitant]
     Dates: start: 20090914
  55. VYTORIN [Concomitant]
     Dosage: 10/20 MG
     Dates: start: 20090914
  56. BUTALBITAL [Concomitant]
     Dosage: PRN
     Dates: start: 20090914
  57. CLONAZEPAM [Concomitant]
     Indication: ANXIETY
     Route: 048
     Dates: start: 20060605
  58. DURADRIN [Concomitant]
     Indication: HEADACHE
     Dosage: ONE CAPSULE THREE TIMES A DAY
     Route: 048
     Dates: start: 20060626
  59. SULAR [Concomitant]
     Route: 048
     Dates: start: 20060721
  60. CITALOPRAM [Concomitant]
     Dosage: TAKE 1/2 TABLET EVERY DAY FOR ONE WEEK,THEN ONE TABLET EVERY DAY TAKE WITH FOOD
     Route: 048
     Dates: start: 20060721
  61. VAGIFEM [Concomitant]
     Dosage: INSERT ONE TABLET INTO VAGINA EVERY DAY FOR ONE WEEK THEN ONE TABLET TWO TIMES A WEEK
     Route: 067
     Dates: start: 20060815
  62. NAPROXEN [Concomitant]
  63. LORATADINE [Concomitant]
  64. ROLAIDS [Concomitant]
     Indication: ABDOMINAL DISCOMFORT
     Dates: start: 1988
  65. TUMS [Concomitant]
     Dates: start: 1988
  66. OTC PEPCID [Concomitant]
  67. MYLANTA [Concomitant]
  68. ALKA-SELTZER [Concomitant]
  69. IBUPROFEN [Concomitant]
     Indication: PAIN
  70. IBUPROFEN [Concomitant]
     Indication: SWELLING
  71. KETOROLAC [Concomitant]
     Dates: start: 20061205
  72. FLUCONAZOLE [Concomitant]
     Dates: start: 20080801
  73. AMOXICILLIN [Concomitant]
     Dates: start: 20090629
  74. TIZANIDINE [Concomitant]
     Dates: start: 20110226
  75. TRAMADOL [Concomitant]
     Route: 048
     Dates: start: 20080527, end: 20090527
  76. INDOMETHACIN [Concomitant]
     Route: 048
     Dates: start: 20080519, end: 20090519
  77. TOLMETIN [Concomitant]
     Route: 048
     Dates: start: 20080510
  78. AMLODIPINE [Concomitant]
     Route: 048

REACTIONS (14)
  - Ankle fracture [Unknown]
  - Fall [Unknown]
  - Intervertebral disc disorder [Unknown]
  - Neoplasm malignant [Unknown]
  - Pain [Unknown]
  - Osteoporosis [Unknown]
  - Anxiety [Unknown]
  - Arthritis [Unknown]
  - Bipolar disorder [Unknown]
  - Glaucoma [Unknown]
  - Sciatic nerve injury [Unknown]
  - Pain [Unknown]
  - Arthralgia [Unknown]
  - Depression [Unknown]
